FAERS Safety Report 23446156 (Version 11)
Quarter: 2025Q2

REPORT INFORMATION
  Report Type: Report from Study
  Country: CA (occurrence: CA)
  Receive Date: 20240126
  Receipt Date: 20250520
  Transmission Date: 20250717
  Serious: Yes (Hospitalization, Other)
  Sender: TAKEDA
  Company Number: CA-TAKEDA-2024TUS006596

PATIENT
  Sex: Female

DRUGS (38)
  1. HUMAN IMMUNOGLOBULIN G [Suspect]
     Active Substance: HUMAN IMMUNOGLOBULIN G
     Indication: Secondary immunodeficiency
     Dosage: 12 GRAM, 1/WEEK
  2. HUMAN IMMUNOGLOBULIN G [Suspect]
     Active Substance: HUMAN IMMUNOGLOBULIN G
     Dosage: 12 GRAM, 1/WEEK
     Dates: start: 20240113
  3. HUMAN IMMUNOGLOBULIN G [Suspect]
     Active Substance: HUMAN IMMUNOGLOBULIN G
     Dosage: UNK UNK, 1/WEEK
  4. HUMAN IMMUNOGLOBULIN G [Suspect]
     Active Substance: HUMAN IMMUNOGLOBULIN G
     Dosage: 12 GRAM, 1/WEEK
  5. GLUCOSCAN [Concomitant]
     Active Substance: TECHNETIUM TC-99M GLUCEPTATE
  6. LINAGLIPTIN [Concomitant]
     Active Substance: LINAGLIPTIN
  7. ACETAMINOPHEN [Concomitant]
     Active Substance: ACETAMINOPHEN
  8. ANUSOL NOS [Concomitant]
     Active Substance: BALSAM PERU\BENZYL BENZOATE\BISMUTH HYDROXIDE\BISMUTH SUBGALLATE\HYDROCORTISONE ACETATE\ZINC OXIDE
  9. CALCITRIOL [Concomitant]
     Active Substance: CALCITRIOL
  10. CALCITRIOL [Concomitant]
     Active Substance: CALCITRIOL
  11. CALCIUM [Concomitant]
     Active Substance: CALCIUM
  12. ENOXAPARIN [Concomitant]
     Active Substance: ENOXAPARIN
  13. FENTANYL [Concomitant]
     Active Substance: FENTANYL
  14. FLUDROCORTISONE ACETATE [Concomitant]
     Active Substance: FLUDROCORTISONE ACETATE
  15. GABAPENTIN [Concomitant]
     Active Substance: GABAPENTIN
  16. HYDROMORPHONE [Concomitant]
     Active Substance: HYDROMORPHONE
  17. LACTOBACILLUS ACIDOPHILUS [Concomitant]
     Active Substance: LACTOBACILLUS ACIDOPHILUS
  18. MAGNESIUM OXIDE [Concomitant]
     Active Substance: MAGNESIUM OXIDE
  19. METOCLOPRAMIDE HYDROCHLORIDE [Concomitant]
     Active Substance: METOCLOPRAMIDE HYDROCHLORIDE
  20. Replavite [Concomitant]
  21. ONDANSETRON HYDROCHLORIDE [Concomitant]
     Active Substance: ONDANSETRON HYDROCHLORIDE
  22. POLYETHYLENE GLYCOL [Concomitant]
     Active Substance: POLYETHYLENE GLYCOL
  23. SENNA [Concomitant]
     Active Substance: SENNOSIDES
  24. SODIUM CHLORIDE [Concomitant]
     Active Substance: SODIUM CHLORIDE
  25. TRAZODONE HCL [Concomitant]
     Active Substance: TRAZODONE HYDROCHLORIDE
  26. VANCOMYCIN HYDROCHLORIDE [Concomitant]
     Active Substance: VANCOMYCIN HYDROCHLORIDE
  27. BRINZOLAMIDE [Concomitant]
     Active Substance: BRINZOLAMIDE
  28. ENTECAVIR [Concomitant]
     Active Substance: ENTECAVIR
  29. TIMOLOL MALEATE [Concomitant]
     Active Substance: TIMOLOL MALEATE
  30. TRAVOPROST [Concomitant]
     Active Substance: TRAVOPROST
  31. NORVASC [Concomitant]
     Active Substance: AMLODIPINE BESYLATE
  32. ACYCLOVIR [Concomitant]
     Active Substance: ACYCLOVIR
     Dosage: UNK UNK, BID
  33. LOVENOX [Concomitant]
     Active Substance: ENOXAPARIN SODIUM
  34. FLUDROCORTISONE [Concomitant]
     Active Substance: FLUDROCORTISONE
  35. PANTOPRAZOLE [Concomitant]
     Active Substance: PANTOPRAZOLE
     Dosage: UNK UNK, BID
  36. TERAZOSIN [Concomitant]
     Active Substance: TERAZOSIN HYDROCHLORIDE
  37. HYDRALAZINE [Concomitant]
     Active Substance: HYDRALAZINE HYDROCHLORIDE
  38. PERINDOPRIL [Concomitant]
     Active Substance: PERINDOPRIL

REACTIONS (7)
  - Clostridium difficile infection [Recovered/Resolved]
  - Haemothorax [Recovering/Resolving]
  - Weight decreased [Unknown]
  - Product use issue [Unknown]
  - Asthenia [Unknown]
  - Blood pressure increased [Recovered/Resolved]
  - Fatigue [Recovering/Resolving]
